FAERS Safety Report 8581253-5 (Version None)
Quarter: 2012Q3

REPORT INFORMATION
  Report Type: 
  Country: None (occurrence: None)
  Receive Date: 20120809
  Receipt Date: 20120806
  Transmission Date: 20120928
  Serious: Yes (Other)
  Sender: FDA-Public Use
  Company Number: PHFR2012GB004058

PATIENT
  Sex: Male
  Weight: 110 kg

DRUGS (6)
  1. HALOPERIDOL [Concomitant]
     Dosage: 10 MG, DAILY
     Route: 048
     Dates: end: 20120601
  2. DIAZEPAM [Concomitant]
     Dosage: 20 MG, DAILY
     Route: 048
  3. MELATONIN [Concomitant]
     Dosage: 6 MG, DAILY
     Route: 048
  4. MIRTAZAPINE [Concomitant]
     Dosage: 30 MG, DAILY
     Route: 048
  5. CLOZARIL [Suspect]
     Indication: SCHIZOPHRENIA
     Route: 048
     Dates: start: 20120709
  6. PROCYCLIDINE HYDROCHLORIDE 2MG TAB [Concomitant]
     Dosage: 2.5 MG, DAILY
     Route: 048

REACTIONS (8)
  - DIARRHOEA [None]
  - NEUTROPHIL COUNT INCREASED [None]
  - WHITE BLOOD CELL COUNT INCREASED [None]
  - GASTRIC INFECTION [None]
  - VOMITING [None]
  - GASTRIC DISORDER [None]
  - CHEST DISCOMFORT [None]
  - BODY TEMPERATURE INCREASED [None]
